FAERS Safety Report 10794975 (Version 1)
Quarter: 2015Q1

REPORT INFORMATION
  Report Type: Report from Study
  Country: US (occurrence: US)
  Receive Date: 20150214
  Receipt Date: 20150214
  Transmission Date: 20150721
  Serious: Yes (Hospitalization)
  Sender: FDA-Public Use
  Company Number: US-BIOGENIDEC-2015BI014708

PATIENT
  Age: 41 Year
  Sex: Female

DRUGS (1)
  1. TECFIDERA [Suspect]
     Active Substance: DIMETHYL FUMARATE
     Indication: MULTIPLE SCLEROSIS
     Route: 048
     Dates: start: 201401

REACTIONS (5)
  - Nausea [Unknown]
  - Oophorectomy bilateral [Unknown]
  - Vision blurred [Unknown]
  - Abdominoplasty [Unknown]
  - Flushing [Unknown]

NARRATIVE: CASE EVENT DATE: 201401
